FAERS Safety Report 22294848 (Version 4)
Quarter: 2024Q1

REPORT INFORMATION
  Report Type: Report from Study
  Country: CA (occurrence: CA)
  Receive Date: 20230508
  Receipt Date: 20240213
  Transmission Date: 20240410
  Serious: Yes (Other)
  Sender: FDA-Public Use
  Company Number: CA-BAUSCH-BL-2023-000936

PATIENT
  Sex: Female

DRUGS (18)
  1. CONTRAVE [Suspect]
     Active Substance: BUPROPION HYDROCHLORIDE\NALTREXONE HYDROCHLORIDE
     Indication: Weight control
     Dosage: 90/8 MG
     Route: 048
     Dates: start: 2022, end: 2022
  2. CONTRAVE [Suspect]
     Active Substance: BUPROPION HYDROCHLORIDE\NALTREXONE HYDROCHLORIDE
     Dosage: 90/8 MG, 2 TABS IN MORNING, 2 TABS IN EVENING
     Route: 048
     Dates: start: 2022, end: 20221226
  3. CONTRAVE [Suspect]
     Active Substance: BUPROPION HYDROCHLORIDE\NALTREXONE HYDROCHLORIDE
     Dosage: 90/8 MG, 2 TABS IN MORNING, 2 TABS IN EVENING (SECOND ATTEMPT)
     Route: 048
     Dates: start: 20230124, end: 2023
  4. CONTRAVE [Suspect]
     Active Substance: BUPROPION HYDROCHLORIDE\NALTREXONE HYDROCHLORIDE
     Dosage: 90/8 MG, 2 TABS/DAY (3RD ATTEMPT) (1 DOSAGE FORMS,1 IN 12 HR)
     Route: 048
     Dates: start: 20230501, end: 202305
  5. CONTRAVE [Suspect]
     Active Substance: BUPROPION HYDROCHLORIDE\NALTREXONE HYDROCHLORIDE
     Dosage: 90/8 MG, 4 TABS/DAY (3RD ATTEMPT) (2 DOSAGE FORMS,1 IN 12 HR)
     Route: 048
     Dates: start: 202305, end: 202307
  6. CONTRAVE [Suspect]
     Active Substance: BUPROPION HYDROCHLORIDE\NALTREXONE HYDROCHLORIDE
     Dosage: 90/8 MG, (4TH ATTEMPT)
     Route: 048
     Dates: start: 2023, end: 2023
  7. CONTRAVE [Suspect]
     Active Substance: BUPROPION HYDROCHLORIDE\NALTREXONE HYDROCHLORIDE
     Dosage: 90/8 MG, 3 TABS/DAY (4TH ATTEMPT)
     Route: 048
     Dates: start: 2023, end: 20231218
  8. CONTRAVE [Suspect]
     Active Substance: BUPROPION HYDROCHLORIDE\NALTREXONE HYDROCHLORIDE
     Dosage: 90/8 MG, 1 TAB Q AM (5TH ATTEMPT)
     Route: 048
     Dates: start: 20240206
  9. MORPHINE [Interacting]
     Active Substance: MORPHINE
     Indication: Arthralgia
     Dosage: UNK
     Route: 065
  10. GABAPENTIN [Concomitant]
     Active Substance: GABAPENTIN
     Indication: Fibromyalgia
     Dosage: OD (1 IN 1 D)
     Route: 048
  11. CYMBALTA [Concomitant]
     Active Substance: DULOXETINE HYDROCHLORIDE
     Indication: Fibromyalgia
     Dosage: OD (60 MG, 1 IN 1 D)
     Route: 048
  12. BUTYLSCOPOLAMINE BROMIDE [Concomitant]
     Active Substance: BUTYLSCOPOLAMINE BROMIDE
     Indication: Irritable bowel syndrome
     Dosage: OD (1 IN 1 D)
     Route: 048
  13. LORAZEPAM [Concomitant]
     Active Substance: LORAZEPAM
     Indication: Anxiety
     Dosage: PRN (1 IN 1 AS REQUIRED)
     Route: 048
  14. VENTOLIN [Concomitant]
     Active Substance: ALBUTEROL SULFATE
     Indication: Asthma
     Dosage: OD, AEROSOL (1 IN 1 D)
  15. ATROVENT [Concomitant]
     Active Substance: IPRATROPIUM BROMIDE
     Indication: Asthma
     Dosage: OD, AEROSOL (1 IN 1 D)
  16. TRAZODONE [Concomitant]
     Active Substance: TRAZODONE HYDROCHLORIDE
     Indication: Insomnia
     Dosage: OD, (1 IN 1 D)
     Route: 048
  17. PANTOPRAZOLE SODIUM [Concomitant]
     Active Substance: PANTOPRAZOLE SODIUM
     Indication: Gastrooesophageal reflux disease
     Dosage: OD (1 IN 1 D)
     Route: 048
  18. PROMENSIL [Concomitant]
     Indication: Menopause
     Dosage: OD (1 IN 1 D)
     Route: 048

REACTIONS (19)
  - Device loosening [Unknown]
  - Gastrointestinal haemorrhage [Recovered/Resolved]
  - Fall [Not Recovered/Not Resolved]
  - Respiratory syncytial virus infection [Not Recovered/Not Resolved]
  - Weight increased [Recovered/Resolved]
  - Blood iron decreased [Not Recovered/Not Resolved]
  - COVID-19 [Not Recovered/Not Resolved]
  - Breast mass [Not Recovered/Not Resolved]
  - Abdominal discomfort [Unknown]
  - Influenza [Not Recovered/Not Resolved]
  - Hot flush [Not Recovered/Not Resolved]
  - Constipation [Not Recovered/Not Resolved]
  - Fatigue [Not Recovered/Not Resolved]
  - Therapy interrupted [Unknown]
  - Product use issue [Unknown]
  - Contraindicated product administered [Unknown]
  - Circumstance or information capable of leading to medication error [Unknown]
  - Labelled drug-drug interaction issue [Unknown]
  - Intentional product use issue [Unknown]

NARRATIVE: CASE EVENT DATE: 20220101
